FAERS Safety Report 14091549 (Version 1)
Quarter: 2017Q4

REPORT INFORMATION
  Report Type: Spontaneous
  Country: US (occurrence: None)
  Receive Date: 20171013
  Receipt Date: 20171013
  Transmission Date: 20180321
  Serious: No
  Sender: FDA-Public Use
  Company Number: None

PATIENT
  Age: 73 Year
  Sex: Female

DRUGS (1)
  1. FORTEO [Suspect]
     Active Substance: TERIPARATIDE

REACTIONS (4)
  - Erythema [None]
  - Injection site erythema [None]
  - Pruritus [None]
  - Injection site reaction [None]

NARRATIVE: CASE EVENT DATE: 20171013
